FAERS Safety Report 25314567 (Version 1)
Quarter: 2025Q2

REPORT INFORMATION
  Report Type: Report from Study
  Country: IT (occurrence: IT)
  Receive Date: 20250514
  Receipt Date: 20250514
  Transmission Date: 20250716
  Serious: Yes (Other)
  Sender: TEVA
  Company Number: IT-TEVA-VS-3330079

PATIENT
  Age: 74 Year
  Sex: Male

DRUGS (3)
  1. AMIODARONE [Suspect]
     Active Substance: AMIODARONE
     Indication: Atrial fibrillation
     Route: 048
  2. AMIODARONE [Suspect]
     Active Substance: AMIODARONE
     Indication: Atrial fibrillation
     Route: 048
  3. AMIODARONE [Suspect]
     Active Substance: AMIODARONE
     Indication: Atrial fibrillation
     Route: 048

REACTIONS (3)
  - Cornea verticillata [Recovering/Resolving]
  - Optic neuropathy [Recovering/Resolving]
  - Pseudopapilloedema [Recovering/Resolving]
